FAERS Safety Report 7098342-7 (Version None)
Quarter: 2010Q4

REPORT INFORMATION
  Report Type: 
  Country: None (occurrence: None)
  Receive Date: 20101112
  Receipt Date: 20101102
  Transmission Date: 20110411
  Serious: No
  Sender: FDA-Public Use
  Company Number: US-PFIZER INC-2010141263

PATIENT
  Age: 63 Year
  Sex: Female
  Weight: 58.967 kg

DRUGS (4)
  1. LYRICA [Suspect]
     Indication: NEURALGIA
     Dosage: 300 MG, 1X/DAY
  2. PROPACET 100 [Concomitant]
     Indication: PAIN
     Dosage: 1/8 TABLET TAKEN EVERY 2 TO 3 HOURS AS NEEDED
  3. HYDROCODONE [Concomitant]
     Indication: PAIN
     Dosage: 1/8 TABLET AS NEEDED
  4. CALCIUM [Concomitant]
     Dosage: UNK

REACTIONS (2)
  - FEELING ABNORMAL [None]
  - PAIN [None]
